FAERS Safety Report 8422582-5 (Version None)
Quarter: 2012Q2

REPORT INFORMATION
  Report Type: 
  Country: None (occurrence: None)
  Receive Date: 20120608
  Receipt Date: 20120529
  Transmission Date: 20120825
  Serious: Yes (Other)
  Sender: FDA-Public Use
  Company Number: US-JNJFOC-20111011876

PATIENT
  Sex: Female
  Weight: 61.24 kg

DRUGS (8)
  1. REMICADE [Suspect]
     Route: 042
     Dates: start: 20040101, end: 20040101
  2. REMICADE [Suspect]
     Indication: CROHN'S DISEASE
     Route: 042
     Dates: end: 20060101
  3. REMICADE [Suspect]
     Route: 042
     Dates: end: 20060101
  4. REMICADE [Suspect]
     Route: 042
     Dates: start: 20040101, end: 20040101
  5. REMICADE [Suspect]
     Route: 042
     Dates: start: 20110301
  6. REMICADE [Suspect]
     Route: 042
     Dates: start: 20110201
  7. REMICADE [Suspect]
     Indication: COLITIS ULCERATIVE
     Route: 042
     Dates: start: 20110201
  8. REMICADE [Suspect]
     Route: 042
     Dates: start: 20110301

REACTIONS (8)
  - ARTHRALGIA [None]
  - MALAISE [None]
  - DIARRHOEA [None]
  - ARTHRITIS [None]
  - ANTINUCLEAR ANTIBODY POSITIVE [None]
  - ARTHROPATHY [None]
  - RECTAL HAEMORRHAGE [None]
  - ANTIPHOSPHOLIPID ANTIBODIES POSITIVE [None]
